FAERS Safety Report 16421041 (Version 1)
Quarter: 2019Q3

REPORT INFORMATION
  Report Type: Spontaneous
  Country: US (occurrence: US)
  Receive Date: 20190611
  Receipt Date: 20190611
  Transmission Date: 20191004
  Serious: No
  Sender: FDA-Public Use
  Company Number: None

PATIENT
  Age: 27 Year
  Sex: Female
  Weight: 51.75 kg

DRUGS (1)
  1. AIMOVIG [Suspect]
     Active Substance: ERENUMAB-AOOE
     Indication: MIGRAINE
     Dosage: ?          QUANTITY:2 INJECTION(S);OTHER FREQUENCY:ONCE MONTHLY;OTHER ROUTE:SUBCUTANEOUS INJECTION?
     Dates: start: 20190228, end: 20190502

REACTIONS (7)
  - Alopecia [None]
  - Fatigue [None]
  - Tinnitus [None]
  - Nervous system disorder [None]
  - Tremor [None]
  - Feeling abnormal [None]
  - Headache [None]

NARRATIVE: CASE EVENT DATE: 20190228
